FAERS Safety Report 8866082 (Version 2)
Quarter: 2012Q4

REPORT INFORMATION
  Report Type: Report from Study
  Country: US (occurrence: US)
  Receive Date: 20121025
  Receipt Date: 20121105
  Transmission Date: 20130627
  Serious: Yes (Other)
  Sender: FDA-Public Use
  Company Number: US-US-EMD SERONO, INC.-7168761

PATIENT
  Sex: Male
  Weight: 78 kg

DRUGS (5)
  1. EGRIFTA [Suspect]
     Indication: LIPODYSTROPHY ACQUIRED
     Dates: end: 201208
  2. ATRIPLA [Concomitant]
     Indication: ACQUIRED IMMUNODEFICIENCY SYNDROME
  3. CRESTOR [Concomitant]
     Indication: LIPIDS INCREASED
  4. LISINOPRIL [Concomitant]
     Indication: HYPERTENSION
  5. ANDROGEL [Concomitant]
     Indication: HYPOGONADISM

REACTIONS (1)
  - Lung neoplasm malignant [Not Recovered/Not Resolved]
